FAERS Safety Report 8087472-9 (Version None)
Quarter: 2012Q1

REPORT INFORMATION
  Report Type: 
  Country: None (occurrence: None)
  Receive Date: 20120128
  Receipt Date: 20110502
  Transmission Date: 20120608
  Serious: No
  Sender: FDA-Public Use
  Company Number: US-ABBOTT-11P-163-0722970-00

PATIENT
  Age: 38 Year
  Sex: Male

DRUGS (3)
  1. NEXIUM [Concomitant]
     Indication: DYSPEPSIA
  2. NEXIUM [Concomitant]
     Indication: GASTROOESOPHAGEAL REFLUX DISEASE
     Dates: start: 20070101
  3. HUMIRA [Suspect]
     Indication: PSORIASIS
     Dates: start: 20101201

REACTIONS (1)
  - INJECTION SITE PAIN [None]
